FAERS Safety Report 4824188-3 (Version None)
Quarter: 2005Q4

REPORT INFORMATION
  Report Type: 
  Country: None (occurrence: None)
  Receive Date: 20051108
  Receipt Date: 20051028
  Transmission Date: 20060501
  Serious: Yes (Hospitalization, Other)
  Sender: FDA-Public Use
  Company Number: USA0510112126

PATIENT
  Age: 38 Year
  Sex: Male

DRUGS (3)
  1. HUMULIN U [Suspect]
     Indication: DIABETES MELLITUS INSULIN-DEPENDENT
     Dosage: 6 U/2 DAY
     Dates: start: 19950101
  2. HUMALOG [Suspect]
     Indication: DIABETES MELLITUS INSULIN-DEPENDENT
     Dosage: 2 U
     Dates: start: 19960101
  3. ILETIN I [Suspect]
     Indication: DIABETES MELLITUS INSULIN-DEPENDENT
     Dates: start: 19710101

REACTIONS (3)
  - BLOOD GLUCOSE DECREASED [None]
  - BLOOD GLUCOSE INCREASED [None]
  - LOSS OF CONSCIOUSNESS [None]
